FAERS Safety Report 20503813 (Version 1)
Quarter: 2022Q1

REPORT INFORMATION
  Report Type: Spontaneous
  Country: CN (occurrence: CN)
  Receive Date: 20220222
  Receipt Date: 20220222
  Transmission Date: 20220423
  Serious: Yes (Other)
  Sender: FDA-Public Use
  Company Number: CN-009507513-2202CHN005089

PATIENT
  Age: 68 Year
  Sex: Male
  Weight: 60 kg

DRUGS (3)
  1. CILASTATIN SODIUM\IMIPENEM [Suspect]
     Active Substance: CILASTATIN SODIUM\IMIPENEM
     Indication: Pneumonia
     Dosage: 1 GRAM, FOUR TIMES IN ONE DAY (QID)/(DOSE: 1 G, IVVP Q6, FOUR TIMES IN ONE DAY (QID), LOT#: U029940,
     Route: 042
     Dates: start: 20220208, end: 20220211
  2. MOXIFLOXACIN HYDROCHLORIDE [Suspect]
     Active Substance: MOXIFLOXACIN HYDROCHLORIDE
     Indication: Pneumonia
     Dosage: 0.4 GRAM, ONCE PER DAY (QD)/(DOSE: 0.4 GRAM, ONCE PER DAY (QD), LOT#: 2112302, STOP DATE: 11-FEB-202
     Route: 042
     Dates: start: 20220209, end: 20220211
  3. SODIUM CHLORIDE [Concomitant]
     Active Substance: SODIUM CHLORIDE
     Indication: Pneumonia
     Dosage: 50 MILLILITER, FOUR TIMES PER DAY (QID)/(DOSE: 50 MILLILITER, FOUR TIMES PER DAY (QID, LOT#: 2110153
     Route: 042
     Dates: start: 20220208, end: 20220211

REACTIONS (1)
  - Delirium [Recovering/Resolving]

NARRATIVE: CASE EVENT DATE: 20220211
